FAERS Safety Report 5005902-3 (Version None)
Quarter: 2006Q2

REPORT INFORMATION
  Report Type: 
  Country: None (occurrence: None)
  Receive Date: 20060517
  Receipt Date: 20060517
  Transmission Date: 20061013
  Serious: Yes (Hospitalization)
  Sender: FDA-Public Use
  Company Number: None

PATIENT
  Age: 78 Year
  Sex: Male

DRUGS (8)
  1. CLOPIDOGREL [Suspect]
     Indication: CEREBROVASCULAR ACCIDENT PROPHYLAXIS
     Dosage: 75 MG QD
     Dates: start: 20031101
  2. ASPIRIN [Suspect]
     Indication: CEREBROVASCULAR ACCIDENT PROPHYLAXIS
     Dosage: 80 MG QD
  3. ZOCOR [Concomitant]
  4. FINASTERIDE [Concomitant]
  5. NITROGLYCERIN [Concomitant]
  6. TAMSULOSINE [Concomitant]
  7. ATENOLOL [Concomitant]
  8. CHLORTHALIDONE [Concomitant]

REACTIONS (2)
  - GASTROINTESTINAL HAEMORRHAGE [None]
  - OPERATIVE HAEMORRHAGE [None]
